FAERS Safety Report 10177999 (Version 1)
Quarter: 2014Q2

REPORT INFORMATION
  Report Type: Other
  Country: JP (occurrence: JP)
  Receive Date: 20140517
  Receipt Date: 20140517
  Transmission Date: 20141212
  Serious: No
  Sender: FDA-Public Use
  Company Number: JP-LUPIN PHARMACEUTICALS INC.-2014-00973

PATIENT
  Age: 7 Decade
  Sex: Female
  Weight: 45 kg

DRUGS (1)
  1. AMLODIPINE TABLET 5 MG ^AMEL^ [Suspect]
     Indication: HYPERTENSION
     Route: 048
     Dates: start: 20130829, end: 20130905

REACTIONS (1)
  - Urticaria [Recovering/Resolving]
